FAERS Safety Report 15550848 (Version 1)
Quarter: 2018Q4

REPORT INFORMATION
  Report Type: Spontaneous
  Country: US (occurrence: US)
  Receive Date: 20181025
  Receipt Date: 20181025
  Transmission Date: 20190205
  Serious: Yes (Hospitalization)
  Sender: FDA-Public Use
  Company Number: None

PATIENT
  Age: 76 Year
  Sex: Male
  Weight: 67.5 kg

DRUGS (8)
  1. CAPECITABINE. [Suspect]
     Active Substance: CAPECITABINE
     Indication: COLON CANCER
     Route: 048
     Dates: start: 20180831, end: 20181022
  2. ZOCOR [Concomitant]
     Active Substance: SIMVASTATIN
  3. VITAMIN D3 [Concomitant]
     Active Substance: CHOLECALCIFEROL
  4. VITAMIN B12 [Concomitant]
     Active Substance: CYANOCOBALAMIN
  5. METOPROLOL. [Concomitant]
     Active Substance: METOPROLOL
  6. ASPIRIN. [Concomitant]
     Active Substance: ASPIRIN
  7. FOLIC ACID. [Concomitant]
     Active Substance: FOLIC ACID
  8. LISINOPRIL. [Concomitant]
     Active Substance: LISINOPRIL

REACTIONS (2)
  - Colitis ulcerative [None]
  - Dehydration [None]

NARRATIVE: CASE EVENT DATE: 20181022
